FAERS Safety Report 25999739 (Version 1)
Quarter: 2025Q4

REPORT INFORMATION
  Report Type: Spontaneous
  Country: US (occurrence: US)
  Receive Date: 20251105
  Receipt Date: 20251105
  Transmission Date: 20260117
  Serious: No
  Sender: Tarsus Pharmaceuticals
  Company Number: US-TARSUS PHARMACEUTICALS-TSP-US-2025-001103

PATIENT

DRUGS (2)
  1. XDEMVY [Suspect]
     Active Substance: LOTILANER
     Indication: Product used for unknown indication
     Dosage: 1 DROP, BID (ONE DROP IN EACH EYE TWICE DAILY)
     Route: 047
     Dates: start: 20250818, end: 20250917
  2. OMEPRAZOLE [Concomitant]
     Active Substance: OMEPRAZOLE
     Indication: Product used for unknown indication
     Route: 065

REACTIONS (3)
  - Foreign body sensation in eyes [Unknown]
  - Condition aggravated [Unknown]
  - Hordeolum [Unknown]
